FAERS Safety Report 10060591 (Version 3)
Quarter: 2014Q2

REPORT INFORMATION
  Report Type: Spontaneous
  Country: US (occurrence: US)
  Receive Date: 20140404
  Receipt Date: 20140423
  Transmission Date: 20141212
  Serious: Yes (Life-Threatening, Hospitalization, Other)
  Sender: FDA-Public Use
  Company Number: PHHY2014US027349

PATIENT
  Age: 78 Year
  Sex: Female

DRUGS (17)
  1. BACLOFEN INTRATHECAL [Suspect]
     Indication: PAIN
     Dosage: 573 UG/DAY
     Route: 037
  2. CARTEOLOL [Suspect]
     Dosage: 1 GTT, BID (BOTH EYES)
     Route: 047
  3. CLONAZEPAM [Suspect]
     Dosage: 0.5 MG, TID (AS NEEDED
     Route: 048
  4. HYDROXYZINE PAMOATE [Suspect]
     Indication: NAUSEA
     Dosage: 1 DF, TID (AS NEEDED)
     Route: 048
  5. QUETIAPINE [Suspect]
     Dosage: 25 MG, DAILY AT BED TIME
     Route: 048
  6. BUPIVACAINE [Suspect]
     Dosage: 2.2 MG/DAY
     Route: 037
  7. DILAUDID [Suspect]
     Dosage: 1.75 MG, DAILY
     Route: 037
  8. DILAUDID [Suspect]
     Dosage: 2.15 MG/DAY
     Route: 037
  9. NEURONTIN [Suspect]
     Dosage: 2 DF, TID
     Route: 048
  10. ROBAXIN [Suspect]
     Dosage: 500 MG, TID
     Route: 048
  11. LASIX [Suspect]
     Dosage: 20 MG, EVERY MORNING
     Route: 048
  12. TOPROL XL [Suspect]
     Dosage: UNK UKN, UNK
  13. MULTI-VIT [Suspect]
     Dosage: UNK UKN, UNK
     Route: 048
  14. POTASSIUM [Suspect]
     Dosage: UNK UKN, UNK
     Route: 048
  15. CALCIUM D3 [Suspect]
     Dosage: 1 DF (500 MG/200 U), BID
     Route: 048
  16. BRIMONIDINE [Suspect]
     Dosage: 1 GTT, BID (BOTH EYES)
     Route: 047
  17. OMEGA 3 FISH OIL [Suspect]
     Dosage: 1200-144-216, PRN
     Route: 048

REACTIONS (21)
  - Cardiac arrest [Recovered/Resolved]
  - Blood gases abnormal [Recovering/Resolving]
  - Myocardial necrosis marker increased [Recovering/Resolving]
  - Encephalopathy [Recovering/Resolving]
  - Rib fracture [Recovering/Resolving]
  - Shock [Recovering/Resolving]
  - Pulseless electrical activity [Recovering/Resolving]
  - Respiratory failure [Recovering/Resolving]
  - Metabolic encephalopathy [Recovering/Resolving]
  - Electroencephalogram abnormal [Recovering/Resolving]
  - Hypertension [Recovering/Resolving]
  - Back pain [Recovering/Resolving]
  - Hypotension [Recovering/Resolving]
  - Depressed level of consciousness [Recovering/Resolving]
  - Unresponsive to stimuli [Recovering/Resolving]
  - Convulsion [Recovering/Resolving]
  - Pain [Recovering/Resolving]
  - Confusional state [Recovering/Resolving]
  - Drug dependence [Recovering/Resolving]
  - Drug withdrawal syndrome [Unknown]
  - Overdose [Recovering/Resolving]
